FAERS Safety Report 15056498 (Version 2)
Quarter: 2018Q3

REPORT INFORMATION
  Report Type: Spontaneous
  Country: PL (occurrence: PL)
  Receive Date: 20180623
  Receipt Date: 20180724
  Transmission Date: 20181010
  Serious: Yes (Hospitalization)
  Sender: FDA-Public Use
  Company Number: PL-ACCORD-068555

PATIENT
  Age: 34 Year
  Sex: Female

DRUGS (5)
  1. AMITRIPTYLINE [Suspect]
     Active Substance: AMITRIPTYLINE
     Indication: DEPRESSIVE SYMPTOM
  2. METFORMIN [Interacting]
     Active Substance: METFORMIN HYDROCHLORIDE
     Indication: DIABETES MELLITUS
  3. FLUOXETINE [Interacting]
     Active Substance: FLUOXETINE HYDROCHLORIDE
     Indication: VOMITING
     Dosage: ALSO RECEIVED 40 MG, 60 MG
     Route: 048
  4. INSULIN [Interacting]
     Active Substance: INSULIN NOS
     Indication: DIABETES MELLITUS
  5. HYDROXYZINE [Interacting]
     Active Substance: HYDROXYZINE HYDROCHLORIDE
     Indication: DEPRESSIVE SYMPTOM

REACTIONS (19)
  - Tension [Unknown]
  - Underdose [Unknown]
  - Insomnia [Unknown]
  - Drug resistance [Unknown]
  - Diet failure [Unknown]
  - Vomiting [Unknown]
  - Drug ineffective [Unknown]
  - Anxiety [Unknown]
  - Binge eating [Unknown]
  - Drug interaction [Unknown]
  - Electrocardiogram QT prolonged [Unknown]
  - Weight increased [Unknown]
  - Poor quality sleep [Unknown]
  - Hypoglycaemia [Unknown]
  - Hyperglycaemia [Unknown]
  - Increased appetite [Unknown]
  - Irritability [Unknown]
  - Body mass index increased [Unknown]
  - Dysphoria [Unknown]
